FAERS Safety Report 10946597 (Version 1)
Quarter: 2015Q1

REPORT INFORMATION
  Report Type: Report from Study
  Country: US (occurrence: US)
  Receive Date: 20150323
  Receipt Date: 20150323
  Transmission Date: 20150721
  Serious: Yes (Other)
  Sender: FDA-Public Use
  Company Number: US-PFIZER INC-2015097717

PATIENT

DRUGS (3)
  1. AZITHROMYCIN [Suspect]
     Active Substance: AZITHROMYCIN ANHYDROUS
     Indication: OBLITERATIVE BRONCHIOLITIS
     Dosage: 250 MG, (3X/WEEK)
  2. MONTELUKAST [Suspect]
     Active Substance: MONTELUKAST SODIUM
     Indication: OBLITERATIVE BRONCHIOLITIS
     Dosage: 10 MG, DAILY
  3. FLUTICASONE [Suspect]
     Active Substance: FLUTICASONE\FLUTICASONE PROPIONATE
     Indication: OBLITERATIVE BRONCHIOLITIS
     Dosage: 440 ?G, 2X/DAY
     Route: 055

REACTIONS (1)
  - Infection [Unknown]
